FAERS Safety Report 16764153 (Version 1)
Quarter: 2019Q3

REPORT INFORMATION
  Report Type: Spontaneous
  Country: US (occurrence: US)
  Receive Date: 20190712
  Receipt Date: 20190712
  Transmission Date: 20191005
  Serious: No
  Sender: FDA-Public Use
  Company Number: None

PATIENT
  Age: 56 Year
  Sex: Female
  Weight: 89.81 kg

DRUGS (1)
  1. ACTEMRA [Suspect]
     Active Substance: TOCILIZUMAB
     Indication: RHEUMATOID ARTHRITIS
     Dosage: ?          OTHER FREQUENCY:EVERY4WKSASDIR;?INFUSE 4MG/KG(360MG) INTRAVENOUSLY?
     Route: 042
     Dates: start: 201904

REACTIONS (5)
  - Pain [None]
  - Insomnia [None]
  - Arthralgia [None]
  - Pain in extremity [None]
  - Headache [None]
